FAERS Safety Report 13609289 (Version 1)
Quarter: 2017Q2

REPORT INFORMATION
  Report Type: Spontaneous
  Country: CN (occurrence: CN)
  Receive Date: 20170602
  Receipt Date: 20170602
  Transmission Date: 20170830
  Serious: Yes (Life-Threatening)
  Sender: FDA-Public Use
  Company Number: PHHY2017CN080933

PATIENT
  Age: 73 Year
  Sex: Male

DRUGS (3)
  1. DICLAC [Suspect]
     Active Substance: DICLOFENAC
     Indication: BACK PAIN
     Dosage: 75 MG, QD
     Route: 048
     Dates: start: 20160814, end: 20160820
  2. CELECOXIB. [Suspect]
     Active Substance: CELECOXIB
     Indication: BACK PAIN
     Dosage: 0.1 G, QD
     Route: 048
     Dates: start: 20160821, end: 20160822
  3. LIGUSTRAZINE [Concomitant]
     Active Substance: TETRAMETHYLPYRAZINE
     Indication: PRODUCT USED FOR UNKNOWN INDICATION
     Dosage: 120 MG, QD
     Route: 041
     Dates: start: 20160814, end: 20160822

REACTIONS (4)
  - Renal injury [Unknown]
  - Thrombocytopenia [Unknown]
  - Acute hepatic failure [Unknown]
  - Haematochezia [Unknown]

NARRATIVE: CASE EVENT DATE: 20160823
